FAERS Safety Report 7966189-2 (Version None)
Quarter: 2011Q4

REPORT INFORMATION
  Report Type: 
  Country: None (occurrence: None)
  Receive Date: 20111208
  Receipt Date: 20111202
  Transmission Date: 20120403
  Serious: Yes (Other)
  Sender: FDA-Public Use
  Company Number: PHHY2011CA106520

PATIENT
  Sex: Female

DRUGS (2)
  1. GILENYA [Suspect]
     Indication: MULTIPLE SCLEROSIS
     Dosage: 0.5 MG, DAILY
     Route: 048
     Dates: start: 20111202, end: 20111202
  2. OXYCET [Concomitant]
     Dosage: UNK UKN, UNK

REACTIONS (2)
  - PARAESTHESIA [None]
  - HYPOAESTHESIA [None]
